FAERS Safety Report 10574818 (Version 4)
Quarter: 2015Q3

REPORT INFORMATION
  Report Type: Report from Study
  Country: US (occurrence: US)
  Receive Date: 20141110
  Receipt Date: 20150818
  Transmission Date: 20151125
  Serious: No
  Sender: FDA-Public Use
  Company Number: US-GILEAD-2014-0121556

PATIENT
  Age: 73 Year
  Sex: Female

DRUGS (5)
  1. AMBRISENTAN [Suspect]
     Active Substance: AMBRISENTAN
     Indication: CHRONIC OBSTRUCTIVE PULMONARY DISEASE
  2. ORENITRAM [Concomitant]
     Active Substance: TREPROSTINIL
  3. AMBRISENTAN [Suspect]
     Active Substance: AMBRISENTAN
     Indication: PULMONARY ARTERIAL HYPERTENSION
     Dosage: 10 MG, QD
     Route: 065
     Dates: start: 20120215
  4. REVATIO [Concomitant]
     Active Substance: SILDENAFIL CITRATE
  5. AMBRISENTAN [Suspect]
     Active Substance: AMBRISENTAN
     Indication: CARDIAC FAILURE CONGESTIVE

REACTIONS (9)
  - Oedema [Unknown]
  - Viral infection [Unknown]
  - Productive cough [Unknown]
  - Hypophagia [Unknown]
  - Flushing [Unknown]
  - Nausea [Unknown]
  - Oropharyngeal pain [Unknown]
  - Headache [Recovering/Resolving]
  - Hot flush [Recovering/Resolving]
